FAERS Safety Report 6739463-5 (Version None)
Quarter: 2010Q2

REPORT INFORMATION
  Report Type: 
  Country: None (occurrence: None)
  Receive Date: 20100525
  Receipt Date: 20100514
  Transmission Date: 20101027
  Serious: Yes (Hospitalization, Other)
  Sender: FDA-Public Use
  Company Number: SE-CELGENEUS-150-50794-10022077

PATIENT
  Sex: Female
  Weight: 50.4 kg

DRUGS (17)
  1. VIDAZA [Suspect]
     Route: 065
     Dates: start: 20100104, end: 20100108
  2. VIDAZA [Suspect]
     Route: 065
     Dates: start: 20091207, end: 20091211
  3. VIDAZA [Suspect]
     Route: 065
     Dates: start: 20091208, end: 20091208
  4. VIDAZA [Suspect]
     Route: 065
     Dates: start: 20091207, end: 20091207
  5. VIDAZA [Suspect]
     Route: 065
     Dates: start: 20091109, end: 20091113
  6. VIDAZA [Suspect]
     Route: 065
     Dates: start: 20090928, end: 20091002
  7. FRAGMIN [Concomitant]
     Indication: DEEP VEIN THROMBOSIS
     Route: 058
  8. SELOKEN [Concomitant]
     Indication: DRUG USE FOR UNKNOWN INDICATION
     Route: 048
  9. FLUCONAZOLE [Concomitant]
     Indication: DRUG USE FOR UNKNOWN INDICATION
     Route: 048
  10. ACIKLOVIR STADA [Concomitant]
     Indication: DRUG USE FOR UNKNOWN INDICATION
     Route: 048
  11. SIFROL [Concomitant]
     Indication: DRUG USE FOR UNKNOWN INDICATION
     Route: 048
  12. ONDANSETRON [Concomitant]
     Indication: DRUG USE FOR UNKNOWN INDICATION
     Route: 048
  13. SCHERIPROCT N [Concomitant]
     Indication: DRUG USE FOR UNKNOWN INDICATION
     Route: 054
  14. OXYCODONE HCL [Concomitant]
     Indication: DRUG USE FOR UNKNOWN INDICATION
     Route: 048
  15. MATRIFEN [Concomitant]
     Indication: DRUG USE FOR UNKNOWN INDICATION
     Route: 062
  16. TAZOCIN [Concomitant]
     Indication: DRUG USE FOR UNKNOWN INDICATION
     Route: 051
  17. HEPARIN [Concomitant]
     Indication: DRUG USE FOR UNKNOWN INDICATION
     Route: 051

REACTIONS (7)
  - INJECTION SITE FIBROSIS [None]
  - INJECTION SITE OEDEMA [None]
  - INJECTION SITE PAIN [None]
  - NUTRITIONAL CONDITION ABNORMAL [None]
  - PAIN [None]
  - PYREXIA [None]
  - WEIGHT DECREASED [None]
